FAERS Safety Report 7086374-4 (Version None)
Quarter: 2010Q4

REPORT INFORMATION
  Report Type: 
  Country: None (occurrence: None)
  Receive Date: 20101105
  Receipt Date: 20101026
  Transmission Date: 20110411
  Serious: Yes (Life-Threatening, Hospitalization)
  Sender: FDA-Public Use
  Company Number: NL-TEVA-253573ISR

PATIENT
  Sex: Female
  Weight: 102 kg

DRUGS (8)
  1. METFORMIN HCL [Suspect]
     Indication: DIABETES MELLITUS
     Dates: start: 20100716, end: 20101007
  2. QUETIAPINE [Concomitant]
     Dates: start: 19970101
  3. OXAZEPAM [Concomitant]
     Dates: start: 19970101, end: 20100716
  4. PRAVASTATIN [Concomitant]
     Dates: start: 19970101
  5. ANTIDEPRESSANTS [Concomitant]
     Dates: start: 20020101
  6. ESOMEPRAZOLE MAGNESIUM [Concomitant]
     Dates: start: 20050101
  7. TEMAZEPAM [Concomitant]
     Dates: start: 20040101
  8. DOMPERIDONE [Concomitant]
     Dates: start: 20090101

REACTIONS (2)
  - DIARRHOEA [None]
  - GASTRIC HAEMORRHAGE [None]
